FAERS Safety Report 20920551 (Version 1)
Quarter: 2022Q2

REPORT INFORMATION
  Report Type: Spontaneous
  Country: US (occurrence: None)
  Receive Date: 20220606
  Receipt Date: 20220606
  Transmission Date: 20220721
  Serious: Yes (Life-Threatening, Hospitalization)
  Sender: FDA-Public Use
  Company Number: None

PATIENT
  Age: 78 Year
  Sex: Male
  Weight: 101 kg

DRUGS (1)
  1. DICLOFENAC SODIUM [Suspect]
     Active Substance: DICLOFENAC SODIUM
     Indication: Pain
     Dosage: 1 TAB BID PO?
     Route: 048
     Dates: start: 20220208, end: 20220304

REACTIONS (6)
  - Anaemia [None]
  - Duodenal ulcer [None]
  - Gastric haemorrhage [None]
  - Acute kidney injury [None]
  - White blood cell count increased [None]
  - Mental status changes [None]

NARRATIVE: CASE EVENT DATE: 20220304
